FAERS Safety Report 4597954-X (Version None)
Quarter: 2005Q1

REPORT INFORMATION
  Report Type: 
  Country: None (occurrence: None)
  Receive Date: 20050301
  Receipt Date: 20050209
  Transmission Date: 20050727
  Serious: Yes (Hospitalization)
  Sender: FDA-Public Use
  Company Number: ATO-05-0031

PATIENT
  Age: 77 Year
  Sex: Female
  Weight: 69.8539 kg

DRUGS (7)
  1. TRISENOX [Suspect]
     Indication: MULTIPLE MYELOMA
     Dosage: 17 MG (17 MG,2X/WK), IVI
     Route: 042
     Dates: start: 20050117, end: 20050209
  2. MELPHALAN [Suspect]
     Indication: MULTIPLE MYELOMA
     Dosage: 1 MG/KG (1 MG/KG, DAYS 1-4) , ORAL
     Route: 048
     Dates: start: 20050117, end: 20050120
  3. VITAMIN C [Suspect]
     Indication: MULTIPLE MYELOMA
     Dosage: 1000 MG (1000 MG) INTRAVENOUS
     Route: 042
     Dates: start: 20050117, end: 20050128
  4. LASIX [Concomitant]
  5. ZOMETA [Concomitant]
  6. AREDIA [Concomitant]
  7. ALDACTONE [Concomitant]

REACTIONS (8)
  - ASTHENIA [None]
  - DIFFICULTY IN WALKING [None]
  - FALL [None]
  - GAIT DISTURBANCE [None]
  - LETHARGY [None]
  - PERSONALITY CHANGE [None]
  - SPINAL COLUMN STENOSIS [None]
  - SUBDURAL HAEMATOMA [None]
